FAERS Safety Report 11089838 (Version 2)
Quarter: 2016Q2

REPORT INFORMATION
  Report Type: Spontaneous
  Country: CO (occurrence: CO)
  Receive Date: 20150505
  Receipt Date: 20160609
  Transmission Date: 20160815
  Serious: Yes (Other)
  Sender: FDA-Public Use
  Company Number: CO-JNJFOC-20150422309

PATIENT
  Sex: Female

DRUGS (1)
  1. STELARA [Suspect]
     Active Substance: USTEKINUMAB
     Indication: PSORIASIS
     Route: 058
     Dates: start: 201412

REACTIONS (4)
  - Skin candida [Unknown]
  - Lymphocyte morphology abnormal [Not Recovered/Not Resolved]
  - Leukaemia [Unknown]
  - Urinary tract infection [Recovered/Resolved]
